FAERS Safety Report 12786051 (Version 3)
Quarter: 2016Q4

REPORT INFORMATION
  Report Type: Spontaneous
  Country: US (occurrence: US)
  Receive Date: 20160927
  Receipt Date: 20161227
  Transmission Date: 20170207
  Serious: Yes (Death)
  Sender: FDA-Public Use
  Company Number: US-CELGENEUS-USA-2016095357

PATIENT
  Age: 93 Year
  Sex: Male

DRUGS (2)
  1. REVLIMID [Suspect]
     Active Substance: LENALIDOMIDE
     Indication: MYELODYSPLASTIC SYNDROME
     Dosage: 10MG
     Route: 048
     Dates: start: 201602, end: 201606
  2. REVLIMID [Suspect]
     Active Substance: LENALIDOMIDE
     Dosage: 2.5MG
     Route: 048
     Dates: start: 20160823, end: 2016

REACTIONS (2)
  - Pneumonia [Fatal]
  - Pancytopenia [Fatal]

NARRATIVE: CASE EVENT DATE: 20160904
